FAERS Safety Report 6443285-2 (Version None)
Quarter: 2009Q4

REPORT INFORMATION
  Report Type: 
  Country: None (occurrence: None)
  Receive Date: 20091113
  Receipt Date: 20091104
  Transmission Date: 20100525
  Serious: Yes (Hospitalization, Other)
  Sender: FDA-Public Use
  Company Number: 2009AC000361

PATIENT
  Age: 75 Year
  Sex: Female

DRUGS (11)
  1. DIGOXIN [Suspect]
     Dosage: UNKNOWN; UNK; PO
     Route: 048
  2. CIPRO [Concomitant]
  3. DARVOCET [Concomitant]
  4. ASPIRIN [Concomitant]
  5. LOPRESSOR [Concomitant]
  6. COUMADIN [Concomitant]
  7. NYSTATIN [Concomitant]
  8. PRILOSEC [Concomitant]
  9. LIPITOR [Concomitant]
  10. REGLAN [Concomitant]
  11. SYNTHROID [Concomitant]

REACTIONS (18)
  - ANXIETY [None]
  - ATRIOVENTRICULAR BLOCK COMPLETE [None]
  - BLEPHARITIS [None]
  - BRADYCARDIA [None]
  - CONJUNCTIVITIS [None]
  - DISCOMFORT [None]
  - ECONOMIC PROBLEM [None]
  - EMOTIONAL DISTRESS [None]
  - FEAR [None]
  - FRACTURE [None]
  - FUNGAL OESOPHAGITIS [None]
  - GASTRITIS [None]
  - INJURY [None]
  - JOINT DISLOCATION [None]
  - MENTAL STATUS CHANGES [None]
  - MUSCULAR WEAKNESS [None]
  - PAIN [None]
  - THERAPEUTIC AGENT TOXICITY [None]
